FAERS Safety Report 6545544-1 (Version None)
Quarter: 2010Q1

REPORT INFORMATION
  Report Type: 
  Country: None (occurrence: None)
  Receive Date: 20100119
  Receipt Date: 20100104
  Transmission Date: 20100710
  Serious: Yes (Hospitalization)
  Sender: FDA-Public Use
  Company Number: 003910

PATIENT
  Sex: Male

DRUGS (1)
  1. CIMZIA [Suspect]
     Indication: COLITIS ULCERATIVE
     Dosage: (400 MG 1X/MONTH, MONTHLY SUBCUTANEOUS)
     Route: 058
     Dates: start: 20081011

REACTIONS (1)
  - SPINAL COLUMN STENOSIS [None]
